FAERS Safety Report 5886801-1 (Version None)
Quarter: 2008Q3

REPORT INFORMATION
  Report Type: 
  Country: None (occurrence: None)
  Receive Date: 20080917
  Receipt Date: 20080905
  Transmission Date: 20090109
  Serious: Yes (Other)
  Sender: FDA-Public Use
  Company Number: PHHY2008CA01171

PATIENT
  Sex: Male

DRUGS (9)
  1. DIOVAN [Suspect]
     Indication: HYPERTENSION
     Dosage: 160 MG, QD
     Route: 048
  2. DIOVAN HCT [Suspect]
     Indication: HYPERTENSION
     Dosage: 160/25 MG
     Route: 048
  3. CALCIUM CHANNEL BLOCKERS [Concomitant]
     Route: 048
  4. DIURETICS [Concomitant]
     Route: 048
  5. CRESTOR [Concomitant]
     Dosage: 20 MG, QD
  6. EZETROL [Concomitant]
     Dosage: UNK, QD
  7. VASERETIC [Concomitant]
     Dosage: UNK, QD
     Route: 048
  8. NORVASC [Concomitant]
     Dosage: 5 MG, QD
     Route: 048
  9. LIPITOR [Concomitant]
     Dosage: 20 MG, QD
     Route: 048

REACTIONS (12)
  - BLOOD CHOLESTEROL INCREASED [None]
  - BLOOD CREATININE INCREASED [None]
  - BLOOD PRESSURE INADEQUATELY CONTROLLED [None]
  - BLOOD TRIGLYCERIDES INCREASED [None]
  - BLOOD UREA INCREASED [None]
  - CARDIOVASCULAR DISORDER [None]
  - HEADACHE [None]
  - HYPERTENSION [None]
  - LOW DENSITY LIPOPROTEIN INCREASED [None]
  - METABOLIC DISORDER [None]
  - MICROALBUMINURIA [None]
  - RENAL FAILURE [None]
